FAERS Safety Report 5083449-6 (Version None)
Quarter: 2006Q3

REPORT INFORMATION
  Report Type: 
  Country: None (occurrence: None)
  Receive Date: 20060818
  Receipt Date: 20060220
  Transmission Date: 20061208
  Serious: Yes (Hospitalization)
  Sender: FDA-Public Use
  Company Number: 2006SE01061

PATIENT
  Age: 825 Month
  Sex: Male

DRUGS (8)
  1. SYMBICORT PMDI [Suspect]
     Indication: CHRONIC OBSTRUCTIVE PULMONARY DISEASE
     Dosage: 2 X 80/4.5 MCG BID
     Route: 055
     Dates: start: 20050704, end: 20060220
  2. SERETIDE [Concomitant]
     Indication: CHRONIC OBSTRUCTIVE PULMONARY DISEASE
     Dosage: 50/250 X 2/DAILY
     Route: 055
     Dates: start: 20041108, end: 20050620
  3. FLIXOTIDE [Concomitant]
     Indication: CHRONIC OBSTRUCTIVE PULMONARY DISEASE
     Route: 055
     Dates: start: 20050620, end: 20050703
  4. ACETAMINOPHEN [Concomitant]
     Indication: RESPIRATORY TRACT INFECTION VIRAL
     Route: 048
     Dates: start: 20051029, end: 20051031
  5. EURESPAL [Concomitant]
     Indication: RESPIRATORY TRACT INFECTION VIRAL
     Route: 048
     Dates: start: 20051029, end: 20051031
  6. VENTOLIN [Concomitant]
     Indication: CHRONIC OBSTRUCTIVE PULMONARY DISEASE
     Route: 055
     Dates: end: 20050703
  7. VENTOLIN [Concomitant]
     Route: 055
     Dates: start: 20050704
  8. VENTOLIN [Concomitant]
     Route: 055
     Dates: start: 20000222

REACTIONS (1)
  - MYOCARDIAL INFARCTION [None]
